FAERS Safety Report 10230898 (Version 2)
Quarter: 2014Q2

REPORT INFORMATION
  Report Type: Spontaneous
  Country: US (occurrence: US)
  Receive Date: 20140611
  Receipt Date: 20140611
  Transmission Date: 20141212
  Serious: Yes (Hospitalization)
  Sender: FDA-Public Use
  Company Number: US-ACTELION-A-NJ2014-099643

PATIENT
  Age: 37 Year
  Sex: Male

DRUGS (4)
  1. OPSUMIT [Suspect]
     Indication: PULMONARY ARTERIAL HYPERTENSION
     Dosage: 10 MG, QD
     Route: 048
     Dates: start: 20140430
  2. FLOLAN [Concomitant]
  3. REVATIO [Concomitant]
  4. COUMADIN [Concomitant]

REACTIONS (2)
  - Condition aggravated [Unknown]
  - Pain [Unknown]
